FAERS Safety Report 18306581 (Version 1)
Quarter: 2020Q3

REPORT INFORMATION
  Report Type: Spontaneous
  Country: US (occurrence: US)
  Receive Date: 20200924
  Receipt Date: 20200924
  Transmission Date: 20201103
  Serious: No
  Sender: FDA-Public Use
  Company Number: None

PATIENT
  Age: 15 Year
  Sex: Female
  Weight: 91.9 kg

DRUGS (1)
  1. RUXIENCE [Suspect]
     Active Substance: RITUXIMAB-PVVR
     Indication: RHEUMATOID ARTHRITIS
     Route: 041
     Dates: start: 20200921, end: 20200921

REACTIONS (5)
  - Throat irritation [None]
  - Infusion related reaction [None]
  - Tachycardia [None]
  - Therapy interrupted [None]
  - Cough [None]

NARRATIVE: CASE EVENT DATE: 20200921
